FAERS Safety Report 21936640 (Version 1)
Quarter: 2023Q1

REPORT INFORMATION
  Report Type: Spontaneous
  Country: US (occurrence: CA)
  Receive Date: 20230201
  Receipt Date: 20230201
  Transmission Date: 20230418
  Serious: Yes (Death)
  Sender: FDA-Public Use
  Company Number: US-AMGEN-CANSP2022027806

PATIENT
  Sex: Female

DRUGS (4)
  1. RITUXIMAB [Suspect]
     Active Substance: RITUXIMAB
     Indication: Glycogen storage disease type II
     Dosage: UNK, 4 DOSES
     Route: 065
  2. METHOTREXATE [Concomitant]
     Active Substance: METHOTREXATE
     Indication: Glycogen storage disease type II
     Dosage: NINE DOSES
  3. HUMAN IMMUNOGLOBULIN G [Concomitant]
     Active Substance: HUMAN IMMUNOGLOBULIN G
     Indication: Glycogen storage disease type II
     Dosage: UNK, QMO
     Route: 040
  4. ALGLUCOSIDASE ALFA [Concomitant]
     Active Substance: ALGLUCOSIDASE ALFA
     Indication: Glycogen storage disease type II
     Dosage: 20 MILLIGRAM/KILOGRAM, Q2WK

REACTIONS (2)
  - Glycogen storage disease type II [Fatal]
  - Off label use [Unknown]
